FAERS Safety Report 8438926-4 (Version None)
Quarter: 2012Q2

REPORT INFORMATION
  Report Type: 
  Country: None (occurrence: None)
  Receive Date: 20120615
  Receipt Date: 20110916
  Transmission Date: 20120825
  Serious: No
  Sender: FDA-Public Use
  Company Number: US-MYLANLABS-2011S1019787

PATIENT
  Age: 64 Year
  Sex: Female

DRUGS (4)
  1. SYNTHROID [Concomitant]
     Indication: THYROID DISORDER
     Route: 048
  2. ROPINIROLE HYDROCHLORIDE [Suspect]
     Route: 048
     Dates: start: 20111001, end: 20111001
  3. ROPINIROLE HYDROCHLORIDE [Suspect]
     Indication: MUSCLE SPASMS
     Route: 048
     Dates: start: 20110801, end: 20111001
  4. METOPROLOL SUCCINATE [Concomitant]
     Indication: CARDIAC DISORDER
     Route: 048

REACTIONS (4)
  - HYPERHIDROSIS [None]
  - NIGHT SWEATS [None]
  - CHEST PAIN [None]
  - TREMOR [None]
